FAERS Safety Report 24629087 (Version 1)
Quarter: 2024Q4

REPORT INFORMATION
  Report Type: Spontaneous
  Country: US (occurrence: US)
  Receive Date: 20241118
  Receipt Date: 20241118
  Transmission Date: 20250115
  Serious: No
  Sender: AUROBINDO
  Company Number: US-AUROBINDO-AUR-APL-2024-047929

PATIENT
  Sex: Male

DRUGS (3)
  1. CLONAZEPAM [Suspect]
     Active Substance: CLONAZEPAM
     Indication: Panic attack
     Dosage: UNK
     Route: 065
  2. CLONAZEPAM [Suspect]
     Active Substance: CLONAZEPAM
     Indication: Neoplasm malignant
  3. CLONAZEPAM [Suspect]
     Active Substance: CLONAZEPAM
     Indication: Chronic lymphocytic leukaemia

REACTIONS (2)
  - Drug ineffective [Unknown]
  - Product substitution issue [Unknown]
